FAERS Safety Report 8587701-9 (Version None)
Quarter: 2012Q3

REPORT INFORMATION
  Report Type: 
  Country: None (occurrence: None)
  Receive Date: 20120813
  Receipt Date: 20120807
  Transmission Date: 20120928
  Serious: Yes (Death, Hospitalization, Other)
  Sender: FDA-Public Use
  Company Number: PHHY2012GB068293

PATIENT
  Sex: Male

DRUGS (3)
  1. WARFARIN SODIUM [Suspect]
  2. HEPARIN [Suspect]
  3. HEPARIN [Suspect]

REACTIONS (10)
  - ABDOMINAL PAIN [None]
  - METABOLIC ACIDOSIS [None]
  - ABDOMINAL COMPARTMENT SYNDROME [None]
  - URINE OUTPUT DECREASED [None]
  - ABDOMINAL WALL HAEMATOMA [None]
  - PALLOR [None]
  - ABDOMINAL TENDERNESS [None]
  - BLOOD CREATININE INCREASED [None]
  - TACHYCARDIA [None]
  - NEUTROPHILIA [None]
